FAERS Safety Report 18726894 (Version 1)
Quarter: 2021Q1

REPORT INFORMATION
  Report Type: Spontaneous
  Country: US (occurrence: US)
  Receive Date: 20210111
  Receipt Date: 20210111
  Transmission Date: 20210419
  Serious: Yes (Other)
  Sender: FDA-Public Use
  Company Number: US-FRESENIUS KABI-FK202100380

PATIENT
  Age: 7 Year
  Sex: Female
  Weight: 30 kg

DRUGS (1)
  1. HEPARIN (MANUFACTURER UNKNOWN) [Suspect]
     Active Substance: HEPARIN SODIUM
     Indication: ANTICOAGULANT THERAPY
     Dosage: UNKNOWN
     Route: 065

REACTIONS (6)
  - Product use issue [Recovered/Resolved]
  - Coagulopathy [Recovered/Resolved]
  - Pulmonary haemorrhage [Recovered/Resolved]
  - Thrombocytopenia [Recovered/Resolved]
  - Conjunctival haemorrhage [Recovered/Resolved]
  - Haemorrhage subcutaneous [Recovered/Resolved]
